FAERS Safety Report 4769141-3 (Version None)
Quarter: 2005Q3

REPORT INFORMATION
  Report Type: 
  Country: None (occurrence: None)
  Receive Date: 20050915
  Receipt Date: 20050912
  Transmission Date: 20060218
  Serious: Yes (Life-Threatening)
  Sender: FDA-Public Use
  Company Number: PHRM2005FR02435

PATIENT
  Sex: Female

DRUGS (5)
  1. SYNTOCINON [Suspect]
     Dosage: 0.4 ML/MN, ONCE/SINGLE
     Route: 042
     Dates: start: 20050729, end: 20050729
  2. CEFACIDAL [Suspect]
     Dosage: 1 G, ONCE/SINGLE
     Route: 042
     Dates: start: 20050729, end: 20050729
  3. MARCAINE [Concomitant]
     Indication: SPINAL ANAESTHESIA
     Dosage: 10 MG, ONCE/SINGLE
     Route: 037
     Dates: start: 20050729, end: 20050729
  4. SUFENTANIL CITRATE [Concomitant]
     Indication: SPINAL ANAESTHESIA
     Dosage: UNK, ONCE/SINGLE
     Route: 037
     Dates: start: 20050729, end: 20050729
  5. MORPHINE [Concomitant]
     Indication: SPINAL ANAESTHESIA
     Dosage: UNK, ONCE/SINGLE
     Route: 037
     Dates: start: 20050729, end: 20050729

REACTIONS (4)
  - ANAPHYLACTOID SHOCK [None]
  - BRONCHOSPASM [None]
  - ERYTHEMA [None]
  - OEDEMA [None]
